FAERS Safety Report 4835094-2 (Version None)
Quarter: 2005Q4

REPORT INFORMATION
  Report Type: 
  Country: None (occurrence: None)
  Receive Date: 20051114
  Receipt Date: 20050930
  Transmission Date: 20060501
  Serious: Yes (Death)
  Sender: FDA-Public Use
  Company Number: 2005AL004223

PATIENT
  Age: 38 Year
  Sex: 0

DRUGS (2)
  1. PROMETHAZINE HCL [Suspect]
     Dosage: PO
     Route: 048
  2. METHADONE HCL [Suspect]
     Dosage: PO
     Route: 048

REACTIONS (2)
  - DRUG ABUSER [None]
  - MULTIPLE DRUG OVERDOSE INTENTIONAL [None]
